FAERS Safety Report 18999186 (Version 1)
Quarter: 2021Q1

REPORT INFORMATION
  Report Type: Report from Study
  Country: FR (occurrence: FR)
  Receive Date: 20210312
  Receipt Date: 20210312
  Transmission Date: 20210420
  Serious: Yes (Hospitalization, Other)
  Sender: FDA-Public Use
  Company Number: FR-AMGEN-FRACT2020132511

PATIENT
  Age: 40 Year
  Sex: Female
  Weight: 56 kg

DRUGS (16)
  1. LEVOFOLINATE [CALCIUM LEVOFOLINATE] [Suspect]
     Active Substance: LEVOLEUCOVORIN CALCIUM
     Indication: ADENOCARCINOMA OF COLON
     Dosage: 325 MILLIGRAM
     Route: 042
     Dates: start: 20200707
  2. ZOPHREN [ONDANSETRON HYDROCHLORIDE] [Concomitant]
     Active Substance: ONDANSETRON
     Indication: PROPHYLAXIS
     Dosage: 8 MILLIGRAM
     Route: 042
     Dates: start: 20200707
  3. 5 FU [Suspect]
     Active Substance: FLUOROURACIL
     Indication: ADENOCARCINOMA OF COLON
     Dosage: 650 MILLIGRAM
     Route: 040
     Dates: start: 20200707
  4. PANITUMUMAB [Suspect]
     Active Substance: PANITUMUMAB
     Dosage: 330 MILLIGRAM
     Route: 042
     Dates: start: 20200721
  5. ZARZIO [Concomitant]
     Active Substance: FILGRASTIM
     Indication: PROPHYLAXIS
     Dosage: 3001 UNK
     Route: 058
     Dates: start: 20200721
  6. OXALIPLATIN. [Suspect]
     Active Substance: OXALIPLATIN
     Indication: ADENOCARCINOMA OF COLON
     Dosage: 140 MILLIGRAM
     Route: 042
     Dates: start: 20200707
  7. IRINOTECAN [Suspect]
     Active Substance: IRINOTECAN
     Indication: ADENOCARCINOMA OF COLON
     Dosage: 290 MILLIGRAM
     Route: 042
     Dates: start: 20200707
  8. 5 FU [Suspect]
     Active Substance: FLUOROURACIL
     Dosage: 3860 MILLIGRAM
     Route: 042
     Dates: start: 20200721
  9. PANITUMUMAB [Suspect]
     Active Substance: PANITUMUMAB
     Indication: ADENOCARCINOMA OF COLON
     Dosage: 330 MILLIGRAM
     Route: 042
     Dates: start: 20200707
  10. LEVOFOLINATE [CALCIUM LEVOFOLINATE] [Suspect]
     Active Substance: LEVOLEUCOVORIN CALCIUM
     Dosage: 325 MILLIGRAM
     Route: 042
     Dates: start: 20200721
  11. IRINOTECAN [Suspect]
     Active Substance: IRINOTECAN
     Dosage: 290 MILLIGRAM
     Route: 042
     Dates: start: 20200721
  12. 5 FU [Suspect]
     Active Substance: FLUOROURACIL
     Dosage: 3890 MILLIGRAM
     Route: 042
     Dates: start: 20200707
  13. DOXYCYCLINE. [Concomitant]
     Active Substance: DOXYCYCLINE
     Indication: PROPHYLAXIS
     Dosage: 100 MILLIGRAM, BID
     Route: 048
     Dates: start: 20200707
  14. OXALIPLATIN. [Suspect]
     Active Substance: OXALIPLATIN
     Dosage: 140 MILLIGRAM
     Route: 042
     Dates: start: 20200721
  15. 5 FU [Suspect]
     Active Substance: FLUOROURACIL
     Dosage: 640 MILLIGRAM
     Route: 040
     Dates: start: 20200721
  16. METHYLPREDNISOLONE. [Concomitant]
     Active Substance: METHYLPREDNISOLONE
     Indication: PROPHYLAXIS
     Dosage: 60 MILLIGRAM
     Route: 042
     Dates: start: 20200707

REACTIONS (2)
  - Renal colic [Recovered/Resolved]
  - Overdose [Recovered/Resolved]

NARRATIVE: CASE EVENT DATE: 20200707
